FAERS Safety Report 24257636 (Version 1)
Quarter: 2024Q3

REPORT INFORMATION
  Report Type: Spontaneous
  Country: US (occurrence: None)
  Receive Date: 20240828
  Receipt Date: 20240828
  Transmission Date: 20241017
  Serious: No
  Sender: ASTRAZENECA
  Company Number: 2024A185601

PATIENT

DRUGS (2)
  1. BRILINTA [Interacting]
     Active Substance: TICAGRELOR
     Route: 048
  2. ELIQUIS [Interacting]
     Active Substance: APIXABAN

REACTIONS (1)
  - Drug interaction [Unknown]
